FAERS Safety Report 21592346 (Version 2)
Quarter: 2023Q2

REPORT INFORMATION
  Report Type: Spontaneous
  Country: US (occurrence: US)
  Receive Date: 20221114
  Receipt Date: 20230511
  Transmission Date: 20230722
  Serious: Yes (Hospitalization)
  Sender: FDA-Public Use
  Company Number: US-BRISTOL-MYERS SQUIBB COMPANY-2022-095726

PATIENT
  Age: 59 Year
  Sex: Female

DRUGS (1)
  1. KENALOG [Suspect]
     Active Substance: TRIAMCINOLONE ACETONIDE
     Indication: Myxoid cyst
     Dosage: 10 INJECTIONS MDV
     Route: 026
     Dates: start: 20220822, end: 20220822

REACTIONS (6)
  - Chest discomfort [Unknown]
  - Hypertension [Unknown]
  - Erythema [Unknown]
  - Urticaria [Unknown]
  - Flushing [Unknown]
  - Heart rate increased [Unknown]

NARRATIVE: CASE EVENT DATE: 20220822
